FAERS Safety Report 8573879-X (Version None)
Quarter: 2012Q3

REPORT INFORMATION
  Report Type: 
  Country: None (occurrence: None)
  Receive Date: 20120806
  Receipt Date: 20120307
  Transmission Date: 20120928
  Serious: No
  Sender: FDA-Public Use
  Company Number: US-GLAXOSMITHKLINE-A0968986A

PATIENT
  Age: 87 Year
  Sex: Female

DRUGS (4)
  1. MUCOLIN [Concomitant]
  2. FLUTICASONE PROPIONATE [Suspect]
     Indication: BRONCHITIS
     Dosage: 2PUFF PER DAY
     Route: 055
     Dates: start: 20110101, end: 20120306
  3. SYNTHROID [Concomitant]
  4. BALSALAZIDE DISODIUM [Concomitant]

REACTIONS (4)
  - DYSPHONIA [None]
  - SPEECH DISORDER [None]
  - RASH [None]
  - TREMOR [None]
